FAERS Safety Report 5010822-4 (Version None)
Quarter: 2006Q2

REPORT INFORMATION
  Report Type: 
  Country: None (occurrence: None)
  Receive Date: 20060525
  Receipt Date: 20060518
  Transmission Date: 20061013
  Serious: Yes (Hospitalization)
  Sender: FDA-Public Use
  Company Number: US-JNJFOC-20060504319

PATIENT
  Sex: Male

DRUGS (10)
  1. REMICADE [Suspect]
     Indication: RHEUMATOID ARTHRITIS
     Route: 042
  2. PAXIL [Concomitant]
  3. WELLBUTRIN [Concomitant]
  4. HUMIRA [Concomitant]
  5. METHOTREXATE [Concomitant]
  6. LISINOPRIL [Concomitant]
  7. ATENOLOL [Concomitant]
  8. OXYCONTIN [Concomitant]
  9. AMBIEN [Concomitant]
  10. FLEXERIL [Concomitant]

REACTIONS (1)
  - CORONARY ARTERY DISEASE [None]
